FAERS Safety Report 18792697 (Version 1)
Quarter: 2021Q1

REPORT INFORMATION
  Report Type: Spontaneous
  Country: US (occurrence: US)
  Receive Date: 20210127
  Receipt Date: 20210127
  Transmission Date: 20210419
  Serious: Yes (Other)
  Sender: FDA-Public Use
  Company Number: US-SUN PHARMACEUTICAL INDUSTRIES LTD-2021R1-275675

PATIENT
  Age: 57 Year
  Sex: Male

DRUGS (2)
  1. BORTEZOMIB. [Suspect]
     Active Substance: BORTEZOMIB
     Indication: PARAPROTEINAEMIA
     Dosage: 1.3 MILLIGRAM PER CUBIC METRE, WEEKLY
     Route: 042
  2. DEXAMETHASONE. [Suspect]
     Active Substance: DEXAMETHASONE
     Indication: PARAPROTEINAEMIA
     Route: 065

REACTIONS (2)
  - Disease progression [Unknown]
  - Cardiogenic shock [Unknown]
